FAERS Safety Report 9590484 (Version 1)
Quarter: 2013Q4

REPORT INFORMATION
  Report Type: Spontaneous
  Country: US (occurrence: US)
  Receive Date: 20131003
  Receipt Date: 20131003
  Transmission Date: 20140711
  Serious: No
  Sender: FDA-Public Use
  Company Number: US-AMGEN-USASP2012077498

PATIENT
  Age: 54 Year
  Sex: Female
  Weight: 80 kg

DRUGS (13)
  1. ENBREL [Suspect]
     Indication: RHEUMATOID ARTHRITIS
     Dosage: 50 MG, QWK
     Route: 058
  2. CYMBALTA [Concomitant]
     Dosage: 30 MG, UNK
  3. NEURONTIN [Concomitant]
     Dosage: 400 MG, UNK
  4. DICLOFENAC ER [Concomitant]
     Dosage: 100 MG, UNK
  5. VALIUM                             /00017001/ [Concomitant]
     Dosage: 2 MG, UNK
  6. RISPERDAL [Concomitant]
     Dosage: 2 MG, UNK
  7. FOLIC ACID [Concomitant]
     Dosage: UNK
  8. NORCO [Concomitant]
     Dosage: 7.5 325 MG
  9. GERITOL                            /02518501/ [Concomitant]
     Dosage: UNK
  10. B COMPLEX                          /00212701/ [Concomitant]
     Dosage: UNK
  11. SULFASALAZINE [Concomitant]
     Dosage: 500 MG, UNK
  12. CITRACAL + D                       /01438101/ [Concomitant]
     Dosage: UNK
  13. OXYCONTIN [Concomitant]
     Dosage: 160 MG, UNK

REACTIONS (1)
  - Influenza [Unknown]
